FAERS Safety Report 18316005 (Version 1)
Quarter: 2020Q3

REPORT INFORMATION
  Report Type: Spontaneous
  Country: FR (occurrence: FR)
  Receive Date: 20200927
  Receipt Date: 20200927
  Transmission Date: 20201103
  Serious: Yes (Congenital Anomaly)
  Sender: FDA-Public Use
  Company Number: FR-TEVA-2020-FR-1831467

PATIENT
  Sex: Female

DRUGS (4)
  1. FLUCONAZOLE. [Suspect]
     Active Substance: FLUCONAZOLE
     Indication: LYME DISEASE
     Route: 064
     Dates: start: 20200321, end: 20200501
  2. MALARONE [Suspect]
     Active Substance: ATOVAQUONE\PROGUANIL HYDROCHLORIDE
     Indication: LYME DISEASE
     Dosage: 1 DOSAGE FORMS
     Route: 064
     Dates: start: 20200321, end: 20200410
  3. AZITHROMYCINE [Suspect]
     Active Substance: AZITHROMYCIN
     Indication: LYME DISEASE
     Route: 064
     Dates: start: 20200323, end: 20200430
  4. ALBENDAZOLE. [Suspect]
     Active Substance: ALBENDAZOLE
     Indication: LYME DISEASE
     Route: 064
     Dates: start: 20200307, end: 20200308

REACTIONS (2)
  - Congenital absence of cranial vault [Not Recovered/Not Resolved]
  - Neural tube defect [Not Recovered/Not Resolved]

NARRATIVE: CASE EVENT DATE: 202008
